FAERS Safety Report 4585973-9 (Version None)
Quarter: 2005Q1

REPORT INFORMATION
  Report Type: 
  Country: None (occurrence: None)
  Receive Date: 20050125
  Receipt Date: 20040922
  Transmission Date: 20050727
  Serious: No
  Sender: FDA-Public Use
  Company Number: USA040669662

PATIENT
  Age: 82 Year
  Sex: Female

DRUGS (1)
  1. FORTEO [Suspect]
     Dates: start: 20040501

REACTIONS (7)
  - BALANCE DISORDER [None]
  - DIZZINESS [None]
  - FEELING ABNORMAL [None]
  - HEADACHE [None]
  - INJECTION SITE HAEMORRHAGE [None]
  - MUSCLE SPASMS [None]
  - SLEEP DISORDER [None]
